FAERS Safety Report 8985597 (Version 2)
Quarter: 2013Q1

REPORT INFORMATION
  Report Type: Spontaneous
  Country: US (occurrence: US)
  Receive Date: 20121226
  Receipt Date: 20130115
  Transmission Date: 20140127
  Serious: No
  Sender: FDA-Public Use
  Company Number: US-PFIZER INC-2012326893

PATIENT
  Age: 59 Year
  Sex: Female
  Weight: 58.96 kg

DRUGS (5)
  1. CELEBREX [Suspect]
     Indication: PAIN
     Dosage: 400 MG, DAILY AT NIGHT
     Dates: start: 20121213
  2. CELEBREX [Suspect]
     Dosage: 200 MG, DAILY
     Dates: start: 20121214, end: 20121215
  3. BENADRYL [Suspect]
     Indication: PRURITUS
     Dosage: 25 MG, SINGLE
     Dates: start: 20121215, end: 20121215
  4. TUMS [Concomitant]
     Indication: OSTEOPOROSIS
     Dosage: UNK
  5. MOTRIN [Concomitant]
     Indication: ARTHRITIS
     Dosage: UNK

REACTIONS (19)
  - Product packaging issue [Unknown]
  - Pruritus [Not Recovered/Not Resolved]
  - Asthenia [Not Recovered/Not Resolved]
  - Vertigo [Unknown]
  - Erythema [Not Recovered/Not Resolved]
  - Feeling drunk [Unknown]
  - Fall [Unknown]
  - Joint injury [Unknown]
  - Contusion [Not Recovered/Not Resolved]
  - Face injury [Unknown]
  - Eye swelling [Unknown]
  - Dizziness [Unknown]
  - Amnesia [Unknown]
  - Painful respiration [Not Recovered/Not Resolved]
  - Emotional disorder [Unknown]
  - Somnolence [Unknown]
  - Hypersensitivity [Unknown]
  - Fear [Unknown]
  - Anger [Unknown]
